FAERS Safety Report 9198570 (Version 1)
Quarter: 2013Q1

REPORT INFORMATION
  Report Type: Spontaneous
  Country: US (occurrence: None)
  Receive Date: 20120709
  Receipt Date: 20120709
  Transmission Date: 20140127
  Serious: Yes (Other)
  Sender: FDA-Public Use
  Company Number: PHHY2011US39556

PATIENT
  Age: 77 Year
  Sex: Male
  Weight: 61 kg

DRUGS (8)
  1. GLEEVEC (IMATINIB) [Suspect]
     Route: 048
  2. CENTRUM SILVER (ASCORBIC ACID, CALCIUM, MINERALS NOS, RETINOL, TOCOPHERYL ACETATE, VITAMIN B NOS, VITAMINS NOS, ZINC) TABLET [Concomitant]
  3. AMLODIPINE (AMLODIPINE) TABLET 10MG [Concomitant]
  4. METOPROLOL (METOPROLOL) TABLET, 100MG [Concomitant]
  5. PRAVASTATIN (PRAVASTATIN) TABLET, 10MG [Concomitant]
  6. AVODART (DUTASTERIDE) CAPSULE, 0.05MG [Concomitant]
  7. HYDROCHLORIC ACID (HYDROCHLORIC ACID) TABLET, 12.5MG [Concomitant]
  8. ASA (ACETYLSALICYLIC ACID) [Concomitant]

REACTIONS (1)
  - Anaemia [None]
